FAERS Safety Report 10541082 (Version 1)
Quarter: 2014Q4

REPORT INFORMATION
  Report Type: Spontaneous
  Country: IT (occurrence: IT)
  Receive Date: 20141024
  Receipt Date: 20141024
  Transmission Date: 20150529
  Serious: Yes (Hospitalization)
  Sender: FDA-Public Use
  Company Number: IT-TAKEDA-2014TUS010348

PATIENT
  Age: 36 Year
  Sex: Male

DRUGS (3)
  1. AMINOSALICYLATE SODIUM [Concomitant]
     Active Substance: AMINOSALICYLATE SODIUM
     Indication: BEHCET^S SYNDROME
  2. STEROIDS [Concomitant]
     Active Substance: UNSPECIFIED INGREDIENT
     Indication: BEHCET^S SYNDROME
     Dosage: UNK
  3. COLCHICINE. [Suspect]
     Active Substance: COLCHICINE
     Indication: BEHCET^S SYNDROME
     Route: 065

REACTIONS (2)
  - Product use issue [Unknown]
  - Neuromyotonia [Unknown]
